FAERS Safety Report 6026371-0 (Version None)
Quarter: 2009Q1

REPORT INFORMATION
  Report Type: 
  Country: None (occurrence: None)
  Receive Date: 20090102
  Receipt Date: 20081223
  Transmission Date: 20090719
  Serious: Yes (Hospitalization)
  Sender: FDA-Public Use
  Company Number: PHEH2008US10127

PATIENT
  Sex: Female

DRUGS (5)
  1. RECLAST [Suspect]
     Dosage: 5 MG, ONCE/SINGLE
     Dates: start: 20080925
  2. CELEBREX [Concomitant]
     Route: 048
  3. NEURONTIN [Concomitant]
     Route: 048
  4. IMURAN [Concomitant]
     Route: 048
  5. BENICAR [Concomitant]

REACTIONS (3)
  - ACUTE PULMONARY OEDEMA [None]
  - HAEMODIALYSIS [None]
  - RENAL FAILURE [None]
